FAERS Safety Report 16255481 (Version 1)
Quarter: 2019Q2

REPORT INFORMATION
  Report Type: Spontaneous
  Country: IN (occurrence: IN)
  Receive Date: 20190430
  Receipt Date: 20190430
  Transmission Date: 20190711
  Serious: Yes (Hospitalization)
  Sender: FDA-Public Use
  Company Number: IN-ALEMBIC PHARMACUETICALS LIMITED-2019SCAL000254

PATIENT

DRUGS (6)
  1. METOPROLOL TARTRATE. [Suspect]
     Active Substance: METOPROLOL TARTRATE
     Indication: HYPERTENSION
     Dosage: 100 MG, OD
     Route: 048
  2. GLIBENCLAMIDE [Concomitant]
     Active Substance: GLYBURIDE
     Indication: PRODUCT USED FOR UNKNOWN INDICATION
     Dosage: 1 MG
  3. METOPROLOL TARTRATE. [Suspect]
     Active Substance: METOPROLOL TARTRATE
     Indication: ATRIAL FIBRILLATION
  4. METFORMIN [Concomitant]
     Active Substance: METFORMIN HYDROCHLORIDE
     Indication: PRODUCT USED FOR UNKNOWN INDICATION
     Dosage: 500 MG
  5. PROPRANOLOL [Suspect]
     Active Substance: PROPRANOLOL HYDROCHLORIDE
     Indication: HYPERTENSION
     Dosage: 40 MG, BID
     Route: 048
  6. VERAPAMIL [Concomitant]
     Active Substance: VERAPAMIL HYDROCHLORIDE
     Indication: HYPERTENSION
     Dosage: 200 MG

REACTIONS (5)
  - Generalised erythema [Recovered/Resolved]
  - Paronychia [Recovered/Resolved]
  - Rash pruritic [Recovered/Resolved]
  - Skin exfoliation [Recovered/Resolved]
  - Psoriasis [Recovered/Resolved]
